FAERS Safety Report 13511334 (Version 1)
Quarter: 2017Q2

REPORT INFORMATION
  Report Type: Report from Study
  Country: None (occurrence: CO)
  Receive Date: 20170503
  Receipt Date: 20170503
  Transmission Date: 20170830
  Serious: Yes (Other)
  Sender: FDA-Public Use
  Company Number: CO-ABBVIE-17K-036-1957823-00

PATIENT
  Age: 74 Year
  Sex: Male
  Weight: 57 kg

DRUGS (2)
  1. HUMIRA [Suspect]
     Active Substance: ADALIMUMAB
     Indication: ANKYLOSING SPONDYLITIS
     Route: 058
     Dates: start: 20110818
  2. LOSARTAN. [Concomitant]
     Active Substance: LOSARTAN
     Indication: PRODUCT USED FOR UNKNOWN INDICATION

REACTIONS (4)
  - Ankylosing spondylitis [Recovering/Resolving]
  - Nerve root compression [Recovering/Resolving]
  - Paraesthesia [Recovering/Resolving]
  - Procedural pain [Recovering/Resolving]

NARRATIVE: CASE EVENT DATE: 2017
